FAERS Safety Report 7288665-0 (Version None)
Quarter: 2011Q1

REPORT INFORMATION
  Report Type: 
  Country: None (occurrence: None)
  Receive Date: 20110211
  Receipt Date: 20110203
  Transmission Date: 20110831
  Serious: No
  Sender: FDA-Public Use
  Company Number: B0698396A

PATIENT
  Sex: Female

DRUGS (4)
  1. RELENZA [Suspect]
     Indication: INFLUENZA
     Route: 055
     Dates: start: 20110203
  2. CHINESE MEDICINE [Concomitant]
     Indication: INFLUENZA
     Dosage: 3IUAX PER DAY
     Route: 048
     Dates: start: 20110203
  3. CALONAL [Concomitant]
     Indication: INFLUENZA
     Dosage: 800MG PER DAY
     Route: 048
     Dates: start: 20110203
  4. MEDICON [Concomitant]
     Indication: INFLUENZA
     Dosage: 3IUAX PER DAY
     Route: 048
     Dates: start: 20110203

REACTIONS (1)
  - DRUG EXPOSURE DURING PREGNANCY [None]
